FAERS Safety Report 14763955 (Version 1)
Quarter: 2018Q2

REPORT INFORMATION
  Report Type: Spontaneous
  Country: BE (occurrence: BE)
  Receive Date: 20180416
  Receipt Date: 20180416
  Transmission Date: 20180711
  Serious: Yes (Death, Hospitalization)
  Sender: FDA-Public Use
  Company Number: BE-CLINIGEN GROUP PLC/ CLINIGEN HEALTHCARE LTD-BE-CLGN-18-00169

PATIENT
  Age: 35 Year
  Sex: Male

DRUGS (8)
  1. FOSCARNET SODIUM. [Suspect]
     Active Substance: FOSCARNET SODIUM
     Indication: HERPES ZOSTER
     Route: 042
     Dates: start: 199302
  2. ACYCLOVIR. [Concomitant]
     Active Substance: ACYCLOVIR
     Route: 048
  3. FAMCYCLOVIR [Suspect]
     Active Substance: FAMCICLOVIR
     Route: 048
     Dates: start: 1993
  4. ACYCLOVIR. [Concomitant]
     Active Substance: ACYCLOVIR
     Route: 048
     Dates: end: 199302
  5. FAMCYCLOVIR [Suspect]
     Active Substance: FAMCICLOVIR
     Indication: HERPES ZOSTER
     Route: 048
     Dates: start: 1993
  6. ACYCLOVIR. [Concomitant]
     Active Substance: ACYCLOVIR
     Indication: HERPES ZOSTER
     Route: 048
     Dates: start: 199208
  7. FOSCARNET SODIUM. [Suspect]
     Active Substance: FOSCARNET SODIUM
     Route: 042
     Dates: start: 1993
  8. ZIDOVUDINE. [Concomitant]
     Active Substance: ZIDOVUDINE
     Indication: HIV TEST POSITIVE
     Dates: start: 1988

REACTIONS (2)
  - Renal failure [Fatal]
  - Off label use [Unknown]
